FAERS Safety Report 5762008-3 (Version None)
Quarter: 2008Q2

REPORT INFORMATION
  Report Type: 
  Country: None (occurrence: None)
  Receive Date: 20080603
  Receipt Date: 20080519
  Transmission Date: 20081010
  Serious: Yes (Hospitalization)
  Sender: FDA-Public Use
  Company Number: TNZDE200800085

PATIENT
  Age: 83 Year
  Sex: Male

DRUGS (6)
  1. INNOHEP [Suspect]
     Indication: THROMBOSIS PROPHYLAXIS
     Dosage: 14000 IU, ONCE DAILY, SUBCUTANEOUS
     Route: 058
     Dates: start: 20080306, end: 20080310
  2. INEGY (INEGY) [Concomitant]
  3. ATACAND HCT [Concomitant]
  4. INSPRA [Concomitant]
  5. FUROSEMIDE [Concomitant]
  6. ACETYLSALICYL ACID (ACETYLSALICYLIC ACID) [Concomitant]

REACTIONS (5)
  - BLOOD PRESSURE DECREASED [None]
  - CARDIOVASCULAR DISORDER [None]
  - NAUSEA [None]
  - OVERDOSE [None]
  - VERTIGO [None]
